FAERS Safety Report 8575167-4 (Version None)
Quarter: 2012Q3

REPORT INFORMATION
  Report Type: 
  Country: None (occurrence: None)
  Receive Date: 20120807
  Receipt Date: 20120801
  Transmission Date: 20120928
  Serious: Yes (Other)
  Sender: FDA-Public Use
  Company Number: US-PFIZER INC-2011245599

PATIENT
  Age: 42 Year
  Sex: Female
  Weight: 105.22 kg

DRUGS (13)
  1. OXYCODONE [Concomitant]
     Dosage: 30 MG, UNK
  2. GABAPENTIN [Suspect]
     Dosage: UNK
  3. NEURONTIN [Suspect]
     Dosage: 300 MG
     Route: 048
  4. PROVENTIL-HFA [Concomitant]
     Indication: PANIC ATTACK
  5. CELEBREX [Concomitant]
     Indication: OSTEOARTHRITIS
     Dosage: 200 MG, 2X/DAY
  6. DIAZEPAM [Concomitant]
     Dosage: UNK
  7. NEURONTIN [Suspect]
     Dosage: 600 MG
     Route: 048
  8. GABAPENTIN [Suspect]
     Indication: NEURALGIA
     Dosage: UNK, 3X/DAY
     Route: 048
  9. NEURONTIN [Suspect]
     Dosage: 600 MG, 3X/DAY
     Route: 048
  10. NEURONTIN [Suspect]
     Dosage: 600 MG, 3X/DAY
     Route: 048
  11. NEURONTIN [Suspect]
     Indication: NEURALGIA
     Dosage: 800 MG
     Route: 048
     Dates: start: 20020101
  12. NEURONTIN [Suspect]
     Dosage: 600 MG
     Route: 048
  13. PROVENTIL-HFA [Concomitant]
     Indication: BRONCHITIS CHRONIC
     Dosage: UNK

REACTIONS (20)
  - MENISCUS LESION [None]
  - PARALYSIS [None]
  - SURGERY [None]
  - DYSKINESIA [None]
  - NEURALGIA [None]
  - GAIT DISTURBANCE [None]
  - WEIGHT INCREASED [None]
  - LIVER DISORDER [None]
  - EPIDURAL ANAESTHESIA [None]
  - MUSCLE CONTRACTURE [None]
  - MUSCULOSKELETAL DISORDER [None]
  - SOMNOLENCE [None]
  - SLEEP DISORDER [None]
  - EXERCISE TOLERANCE DECREASED [None]
  - TOXICITY TO VARIOUS AGENTS [None]
  - PAIN [None]
  - BACK INJURY [None]
  - LIGAMENT SPRAIN [None]
  - JOINT DISLOCATION [None]
  - FALL [None]
